FAERS Safety Report 6288606-9 (Version None)
Quarter: 2009Q3

REPORT INFORMATION
  Report Type: 
  Country: None (occurrence: None)
  Receive Date: 20090729
  Receipt Date: 20090720
  Transmission Date: 20100115
  Serious: Yes (Other)
  Sender: FDA-Public Use
  Company Number: NL-ASTRAZENECA-2009SE05556

PATIENT
  Age: 59 Year
  Sex: Female

DRUGS (1)
  1. SEROQUEL [Suspect]
     Route: 048

REACTIONS (4)
  - DIABETES MELLITUS [None]
  - MOBILITY DECREASED [None]
  - SEDATION [None]
  - WEIGHT INCREASED [None]
